FAERS Safety Report 4307677-X (Version None)
Quarter: 2004Q1

REPORT INFORMATION
  Report Type: 
  Country: None (occurrence: None)
  Receive Date: 20040225
  Receipt Date: 20030924
  Transmission Date: 20041129
  Serious: Yes (Hospitalization)
  Sender: FDA-Public Use
  Company Number: WAES 0309USA02603

PATIENT
  Age: 57 Year
  Sex: 0

DRUGS (6)
  1. ZOCOR [Suspect]
     Indication: BLOOD CHOLESTEROL INCREASED
     Dosage: 40 MG/DAILY/PO
     Route: 048
     Dates: end: 20030901
  2. EPOGEN [Concomitant]
  3. CYCLOSPORINE [Concomitant]
  4. METOPROLOL [Concomitant]
  5. PREDNISONE [Concomitant]
  6. SULFAMETHOXAZOLE [Concomitant]

REACTIONS (2)
  - RENAL FAILURE ACUTE [None]
  - RHABDOMYOLYSIS [None]
